FAERS Safety Report 6612376-5 (Version None)
Quarter: 2010Q1

REPORT INFORMATION
  Report Type: 
  Country: None (occurrence: None)
  Receive Date: 20100302
  Receipt Date: 20100302
  Transmission Date: 20100710
  Serious: Yes (Hospitalization)
  Sender: FDA-Public Use
  Company Number: None

PATIENT
  Sex: Female
  Weight: 11.59 kg

DRUGS (2)
  1. SYNAGIS [Suspect]
     Dosage: 1 ML MONTHLY SQ
     Route: 058
     Dates: start: 20100226, end: 20100226
  2. SYNAGIS [Suspect]
     Dosage: .74 ML MONTHLY SQ
     Route: 058
     Dates: start: 20100226, end: 20100226

REACTIONS (1)
  - RESPIRATORY SYNCYTIAL VIRUS TEST POSITIVE [None]
